FAERS Safety Report 8239361-4 (Version None)
Quarter: 2012Q1

REPORT INFORMATION
  Report Type: 
  Country: None (occurrence: None)
  Receive Date: 20120328
  Receipt Date: 20120314
  Transmission Date: 20120608
  Serious: Yes (Hospitalization, Other)
  Sender: FDA-Public Use
  Company Number: US-BRISTOL-MYERS SQUIBB COMPANY-15647365

PATIENT
  Age: 43 Year
  Sex: Male

DRUGS (6)
  1. CLARITIN [Concomitant]
     Dates: start: 20080715
  2. IPILIMUMAB [Suspect]
     Indication: MALIGNANT MELANOMA
     Dosage: 28FEB2011.
     Route: 042
     Dates: start: 20110228, end: 20110331
  3. BENICAR [Concomitant]
     Dates: start: 20080715
  4. ZYVOX [Concomitant]
     Dates: start: 20110417, end: 20110426
  5. IMIPENEM [Concomitant]
     Route: 042
     Dates: start: 20110417, end: 20110424
  6. FLUCONAZOLE [Concomitant]
     Route: 042
     Dates: start: 20110417, end: 20110422

REACTIONS (5)
  - HYPOTENSION [None]
  - WOUND INFECTION [None]
  - COLITIS [None]
  - DIARRHOEA [None]
  - INTESTINAL PERFORATION [None]
